FAERS Safety Report 7789513-2 (Version None)
Quarter: 2011Q3

REPORT INFORMATION
  Report Type: 
  Country: None (occurrence: None)
  Receive Date: 20110930
  Receipt Date: 20110919
  Transmission Date: 20111222
  Serious: Yes (Other)
  Sender: FDA-Public Use
  Company Number: US-ELI_LILLY_AND_COMPANY-US201107003738

PATIENT
  Sex: Female
  Weight: 67.574 kg

DRUGS (2)
  1. CYMBALTA [Suspect]
     Indication: DEPRESSION
     Dosage: 10 MG, UNKNOWN
     Dates: start: 20101228
  2. CYMBALTA [Suspect]
     Dosage: 60 MG, EACH EVENING

REACTIONS (2)
  - BLOOD SODIUM DECREASED [None]
  - TRANSIENT ISCHAEMIC ATTACK [None]
